FAERS Safety Report 25698849 (Version 2)
Quarter: 2025Q4

REPORT INFORMATION
  Report Type: Spontaneous
  Country: EU (occurrence: EU)
  Receive Date: 20250819
  Receipt Date: 20251001
  Transmission Date: 20260117
  Serious: Yes (Hospitalization, Other)
  Sender: AUROBINDO
  Company Number: EU-AFSSAPS-MP2025001087

PATIENT
  Age: 12 Day
  Sex: Female
  Weight: 2.74 kg

DRUGS (4)
  1. AMOXICILLIN [Suspect]
     Active Substance: AMOXICILLIN
     Indication: Bacterial vaginosis
     Dosage: 2 GRAM, 3 TIMES A DAY
     Route: 064
     Dates: start: 20250624, end: 20250625
  2. METRONIDAZOLE [Suspect]
     Active Substance: METRONIDAZOLE
     Indication: Bacterial vaginosis
     Dosage: UNK
     Route: 064
     Dates: start: 20250625, end: 20250630
  3. TRANDATE [Suspect]
     Active Substance: LABETALOL HYDROCHLORIDE
     Indication: Hypertension
     Dosage: 200 MILLIGRAM, 3 TIMES A DAY
     Route: 064
     Dates: start: 20250607, end: 20250630
  4. LOXOPROFEN SODIUM DIHYDRATE [Suspect]
     Active Substance: LOXOPROFEN SODIUM DIHYDRATE
     Indication: Hypertension
     Dosage: 50 MILLIGRAM, TWO TIMES A DAY
     Route: 064
     Dates: start: 20250607, end: 20250630

REACTIONS (3)
  - Neonatal respiratory distress syndrome [Recovered/Resolved]
  - Hyponatraemia [Recovered/Resolved]
  - Maternal exposure during pregnancy [Recovered/Resolved]

NARRATIVE: CASE EVENT DATE: 20250601
